FAERS Safety Report 15234334 (Version 4)
Quarter: 2018Q3

REPORT INFORMATION
  Report Type: Spontaneous
  Country: US (occurrence: US)
  Receive Date: 20180803
  Receipt Date: 20180915
  Transmission Date: 20181010
  Serious: Yes (Other)
  Sender: FDA-Public Use
  Company Number: US-JNJFOC-20180723750

PATIENT
  Sex: Male
  Weight: 72.58 kg

DRUGS (3)
  1. DEPAKOTE [Concomitant]
     Active Substance: DIVALPROEX SODIUM
     Route: 065
  2. RISPERDAL [Suspect]
     Active Substance: RISPERIDONE
     Indication: BIPOLAR DISORDER
     Route: 048
     Dates: start: 1996
  3. TRILEPTAL [Concomitant]
     Active Substance: OXCARBAZEPINE
     Indication: BIPOLAR DISORDER
     Route: 048

REACTIONS (7)
  - Depression [Unknown]
  - Sexual dysfunction [Not Recovered/Not Resolved]
  - Mental disorder [Recovered/Resolved]
  - Product label issue [Unknown]
  - Breast pain [Not Recovered/Not Resolved]
  - Purulent discharge [Unknown]
  - Gynaecomastia [Not Recovered/Not Resolved]
